FAERS Safety Report 15073376 (Version 1)
Quarter: 2018Q2

REPORT INFORMATION
  Report Type: Spontaneous
  Country: US (occurrence: US)
  Receive Date: 20180606
  Receipt Date: 20180606
  Transmission Date: 20180711
  Serious: No
  Sender: FDA-Public Use
  Company Number: None

PATIENT
  Age: 78 Year
  Sex: Female

DRUGS (1)
  1. SULFADIAZINE TABLETS, USP [Suspect]
     Active Substance: SULFADIAZINE
     Indication: RHEUMATOID ARTHRITIS
     Route: 048
     Dates: start: 20180329, end: 20180606

REACTIONS (3)
  - Drug dispensing error [None]
  - Wrong drug administered [None]
  - Dizziness [None]

NARRATIVE: CASE EVENT DATE: 20180329
